FAERS Safety Report 5941397-0 (Version None)
Quarter: 2008Q4

REPORT INFORMATION
  Report Type: 
  Country: None (occurrence: None)
  Receive Date: 20081104
  Receipt Date: 20081104
  Transmission Date: 20090506
  Serious: Yes (Other)
  Sender: FDA-Public Use
  Company Number: None

PATIENT
  Age: 69 Year
  Sex: Female
  Weight: 57 kg

DRUGS (1)
  1. SOLU-MEDROL [Suspect]
     Indication: ANTIINFLAMMATORY THERAPY
     Dosage: 30 MG EVERY 6 HOURS IV
     Route: 042
     Dates: start: 20080331, end: 20080409

REACTIONS (2)
  - CARBON DIOXIDE INCREASED [None]
  - HYPERNATRAEMIA [None]
